FAERS Safety Report 9008744 (Version 2)
Quarter: 2013Q4

REPORT INFORMATION
  Report Type: Spontaneous
  Country: GB (occurrence: GB)
  Receive Date: 20130111
  Receipt Date: 20131002
  Transmission Date: 20140711
  Serious: Yes (Hospitalization, Other)
  Sender: FDA-Public Use
  Company Number: GB-ROCHE-1176913

PATIENT
  Age: 54 Year
  Sex: Male
  Weight: 70 kg

DRUGS (6)
  1. ROACTEMRA [Suspect]
     Indication: RHEUMATOID ARTHRITIS
     Dosage: 8 MG/KG
     Route: 042
     Dates: start: 20120907, end: 20121205
  2. DIAZEPAM [Concomitant]
     Indication: ANXIETY
     Route: 048
  3. FOLIC ACID [Concomitant]
     Route: 048
  4. NITRAZEPAM [Concomitant]
     Indication: SEDATION
     Route: 048
  5. OMEPRAZOLE [Concomitant]
     Indication: DYSPEPSIA
     Route: 048
  6. PARACETAMOL [Concomitant]
     Route: 048

REACTIONS (11)
  - Pulmonary haemorrhage [Recovered/Resolved]
  - Lung infiltration [Unknown]
  - Thrombosis [Unknown]
  - Cough [Unknown]
  - C-reactive protein increased [Unknown]
  - Blood creatinine increased [Unknown]
  - Cutaneous vasculitis [Unknown]
  - Red blood cell sedimentation rate increased [Unknown]
  - Haemoglobin decreased [Unknown]
  - Haemoptysis [Recovered/Resolved]
  - Respiratory failure [Unknown]
